FAERS Safety Report 25675073 (Version 2)
Quarter: 2025Q3

REPORT INFORMATION
  Report Type: Spontaneous
  Country: US (occurrence: US)
  Receive Date: 20250813
  Receipt Date: 20250929
  Transmission Date: 20251021
  Serious: No
  Sender: BRISTOL-MYERS SQUIBB COMPANY
  Company Number: US-BRISTOL-MYERS SQUIBB COMPANY-2025-112194

PATIENT
  Age: 86 Year
  Sex: Female

DRUGS (1)
  1. LENALIDOMIDE [Suspect]
     Active Substance: LENALIDOMIDE
     Indication: Plasma cell myeloma
     Dosage: TAKE 1 CAPSULE WHOLE BY MOUTH WITH?WATER EVERY DAY FOR 21 DAYS THEN HOLD FOR 7 DAYS. DO NOT BREAK, CHEW,?OR OPEN.

REACTIONS (2)
  - Herpes zoster [Recovering/Resolving]
  - Back pain [Not Recovered/Not Resolved]
